FAERS Safety Report 5843770-8 (Version None)
Quarter: 2008Q3

REPORT INFORMATION
  Report Type: 
  Country: None (occurrence: None)
  Receive Date: 20080731
  Receipt Date: 20080425
  Transmission Date: 20090109
  Serious: No
  Sender: FDA-Public Use
  Company Number: US200804007115

PATIENT
  Age: 70 Year
  Sex: Female

DRUGS (25)
  1. BYETTA [Suspect]
     Indication: TYPE 2 DIABETES MELLITUS
     Dosage: 5 UG, 2/D, SUBCUTANEOUS ; 10 UG, 2/D, SUBCUTANEOUS
     Route: 058
     Dates: start: 20080301, end: 20080401
  2. BYETTA [Suspect]
     Indication: TYPE 2 DIABETES MELLITUS
     Dosage: 5 UG, 2/D, SUBCUTANEOUS ; 10 UG, 2/D, SUBCUTANEOUS
     Route: 058
     Dates: start: 20080401
  3. METFORMIN HCL [Concomitant]
  4. POTASSIUM CHLORIDE [Concomitant]
  5. FUROSEMIDE (FUROSEMIDE) [Concomitant]
  6. WARFARIN SODIUM [Concomitant]
  7. ACTONEL /USA/ (RISEDRONATE SODIUM) [Concomitant]
  8. PROPRANOLOL [Concomitant]
  9. PREMARIN [Concomitant]
  10. FLUTICASONE PROPIONATE [Concomitant]
  11. ZETIA [Concomitant]
  12. VITAMIN B6 [Concomitant]
  13. BIOTIN [Concomitant]
  14. FOLIC ACID [Concomitant]
  15. MINERAL SUPPLEMENTS [Concomitant]
  16. SELENIUM (SELENIUM) [Concomitant]
  17. VITAMIN E /001105/ (TOCOPHEROL) [Concomitant]
  18. LOVAZA [Concomitant]
  19. CHROMIUM PICOLINATE (CHROMIUM PICOLINATE) [Concomitant]
  20. FLAXSEED OIL (LINUM USITATISSIMUM SEED OIL) [Concomitant]
  21. TOCOPHEROL (TOCOPHEROL) [Concomitant]
  22. CALCIUM (CALCIUM) [Concomitant]
  23. ASCORBIC ACID [Concomitant]
  24. FIORICET W/CODEINE (BUTALBITAL, CAFFEINE, CODEINE PHOSPHATE, PARACETAM [Concomitant]
  25. VITAMIN B12 [Concomitant]

REACTIONS (3)
  - INJECTION SITE HAEMATOMA [None]
  - INJECTION SITE HAEMORRHAGE [None]
  - URINARY TRACT INFECTION [None]
